FAERS Safety Report 4264783-6 (Version None)
Quarter: 2004Q1

REPORT INFORMATION
  Report Type: 
  Country: None (occurrence: None)
  Receive Date: 20040106
  Receipt Date: 20020409
  Transmission Date: 20041129
  Serious: Yes (Other)
  Sender: FDA-Public Use
  Company Number: US-BRISTOL-MYERS SQUIBB COMPANY-11809092

PATIENT
  Age: 32 Year
  Sex: Male
  Weight: 71 kg

DRUGS (5)
  1. EFAVIRENZ [Suspect]
     Indication: HIV INFECTION
     Route: 048
     Dates: start: 20010904
  2. COMBIVIR [Suspect]
     Indication: HIV INFECTION
     Dosage: BLINDED
     Route: 048
     Dates: start: 20010904
  3. TRIZIVIR [Suspect]
     Indication: HIV INFECTION
     Dosage: BLINDED
     Route: 048
     Dates: start: 20010904
  4. TOPAMAX [Concomitant]
     Route: 048
     Dates: start: 20001106
  5. KEPPRA [Concomitant]
     Route: 048
     Dates: start: 20010322

REACTIONS (1)
  - NEUTROPENIA [None]
